FAERS Safety Report 5578659-5 (Version None)
Quarter: 2007Q4

REPORT INFORMATION
  Report Type: 
  Country: None (occurrence: None)
  Receive Date: 20071227
  Receipt Date: 20071210
  Transmission Date: 20080405
  Serious: Yes (Other)
  Sender: FDA-Public Use
  Company Number: 2007US003123

PATIENT
  Age: 80 Year
  Sex: Male

DRUGS (1)
  1. AMBISOME [Suspect]
     Indication: POST PROCEDURAL INFECTION
     Dosage: 100 MG, UID/QD, IV NOS
     Route: 042
     Dates: start: 20070724, end: 20071101

REACTIONS (8)
  - BLOOD ALBUMIN DECREASED [None]
  - CHOLECYSTITIS ACUTE [None]
  - HYPOKALAEMIA [None]
  - PLATELET COUNT DECREASED [None]
  - PLATELET COUNT INCREASED [None]
  - PROTEIN TOTAL DECREASED [None]
  - WHITE BLOOD CELL COUNT DECREASED [None]
  - WOUND INFECTION STAPHYLOCOCCAL [None]
